FAERS Safety Report 13169461 (Version 7)
Quarter: 2018Q2

REPORT INFORMATION
  Report Type: Report from Study
  Country: GB (occurrence: GB)
  Receive Date: 20170201
  Receipt Date: 20180626
  Transmission Date: 20180711
  Serious: Yes (Death, Other)
  Sender: FDA-Public Use
  Company Number: GB-AMGEN-GBRNI2017014950

PATIENT
  Age: 58 Year
  Sex: Male
  Weight: 81 kg

DRUGS (12)
  1. OMEPRAZOLE. [Concomitant]
     Active Substance: OMEPRAZOLE
     Dosage: UNK
     Dates: start: 20120727
  2. TOLTERODINE [Concomitant]
     Active Substance: TOLTERODINE
     Dosage: UNK
     Dates: start: 20160205, end: 20160305
  3. ETANERCEPT [Suspect]
     Active Substance: ETANERCEPT
     Indication: PSORIASIS
     Dosage: 50 MG, QWK
     Route: 065
     Dates: start: 20131007
  4. CANDESARTAN. [Concomitant]
     Active Substance: CANDESARTAN
     Dosage: UNK
     Dates: start: 20150330
  5. ASPIRIN (E.C.) [Concomitant]
     Active Substance: ASPIRIN
     Dosage: UNK
     Dates: start: 20090529
  6. MONOMAX [Concomitant]
     Dosage: UNK
     Dates: start: 20101101
  7. FUROSEMIDE. [Concomitant]
     Active Substance: FUROSEMIDE
     Dosage: UNK
     Dates: start: 20131201
  8. VENLAFAXINE [Concomitant]
     Active Substance: VENLAFAXINE HYDROCHLORIDE
     Dosage: UNK
     Dates: start: 20080107
  9. CASSIA SENNA [Concomitant]
     Active Substance: HERBALS\SENNOSIDES
     Dosage: UNK
     Dates: start: 20140201
  10. SECURON [Concomitant]
     Active Substance: VERAPAMIL HYDROCHLORIDE
     Dosage: UNK
     Dates: start: 20120716
  11. PRIADEL [Concomitant]
     Active Substance: LITHIUM
     Dosage: UNK
     Dates: start: 20080107
  12. ATORVASTATIN [Concomitant]
     Active Substance: ATORVASTATIN
     Dosage: UNK
     Dates: start: 20120716

REACTIONS (8)
  - Pneumonia [Fatal]
  - Hernia [Unknown]
  - Myocardial ischaemia [Unknown]
  - Hypertension [Unknown]
  - Depression [Unknown]
  - Idiopathic pulmonary fibrosis [Fatal]
  - Non-alcoholic fatty liver [Unknown]
  - Psoriasis [Unknown]
